FAERS Safety Report 9184792 (Version 1)
Quarter: 2013Q1

REPORT INFORMATION
  Report Type: Report from Study
  Country: US (occurrence: US)
  Receive Date: 20130325
  Receipt Date: 20130325
  Transmission Date: 20140127
  Serious: Yes (Death)
  Sender: FDA-Public Use
  Company Number: US-PFIZER INC-2013091759

PATIENT
  Sex: 0

DRUGS (4)
  1. CISPLATIN [Suspect]
     Indication: GASTROOESOPHAGEAL CANCER
     Dosage: 25 MG/M2, ON DAY 1, 8, CYCLIC (CYCLES WERE 3 WEEKS)
  2. IRINOTECAN HCL [Suspect]
     Indication: GASTROOESOPHAGEAL CANCER
     Dosage: 50 MG/M2, ON DAY 1, 8, CYCLIC (CYCLES WERE 3 WEEKS)
  3. DOCETAXEL [Suspect]
     Indication: GASTROOESOPHAGEAL CANCER
     Dosage: 30 MG/M2, ON DAY 1, 8, CYCLIC (CYCLES WERE 3 WEEKS)
  4. BEVACIZUMAB [Suspect]
     Indication: GASTROOESOPHAGEAL CANCER
     Dosage: 10 MG/KG,  DAY 1, CYCLIC (CYCLES WERE 3 WEEKS)

REACTIONS (1)
  - Oesophageal haemorrhage [Fatal]
